FAERS Safety Report 9275242 (Version 1)
Quarter: 2013Q2

REPORT INFORMATION
  Report Type: Spontaneous
  Country: US (occurrence: US)
  Receive Date: 20130507
  Receipt Date: 20130507
  Transmission Date: 20140414
  Serious: Yes (Other)
  Sender: FDA-Public Use
  Company Number: US-PFIZER INC-2013138942

PATIENT
  Age: 60 Year
  Sex: Male

DRUGS (3)
  1. ZOLOFT [Suspect]
     Indication: MENTAL DISORDER
     Dosage: 200 MG, ONCE DAILY
     Route: 048
  2. ABILIFY [Suspect]
     Indication: MENTAL DISORDER
     Dosage: UNK
  3. VALIUM [Suspect]
     Indication: MENTAL DISORDER
     Dosage: UNK

REACTIONS (1)
  - Hernia [Unknown]
